FAERS Safety Report 7242364-X (Version None)
Quarter: 2011Q1

REPORT INFORMATION
  Report Type: 
  Country: None (occurrence: None)
  Receive Date: 20110125
  Receipt Date: 20110113
  Transmission Date: 20110831
  Serious: No
  Sender: FDA-Public Use
  Company Number: US-BIOGENIDEC-2010BI025642

PATIENT
  Age: 44 Year
  Sex: Male

DRUGS (1)
  1. TYSABRI [Suspect]
     Indication: MULTIPLE SCLEROSIS
     Route: 042
     Dates: start: 20100618

REACTIONS (5)
  - GAIT DISTURBANCE [None]
  - TREMOR [None]
  - ASTHENIA [None]
  - MOBILITY DECREASED [None]
  - HEMICEPHALALGIA [None]
